FAERS Safety Report 7361551-3 (Version None)
Quarter: 2011Q1

REPORT INFORMATION
  Report Type: 
  Country: None (occurrence: None)
  Receive Date: 20110318
  Receipt Date: 20110315
  Transmission Date: 20110831
  Serious: Yes (Death, Other)
  Sender: FDA-Public Use
  Company Number: PHHY2011JP21446

PATIENT
  Age: 63 Year

DRUGS (4)
  1. TACROLIMUS [Concomitant]
  2. PREDNISOLONE [Suspect]
     Indication: INTERSTITIAL LUNG DISEASE
     Dosage: 1 MG/KG, PER DAY
  3. CYCLOSPORINE [Suspect]
     Indication: INTERSTITIAL LUNG DISEASE
  4. CYCLOSPORINE [Suspect]
     Indication: DERMATOMYOSITIS

REACTIONS (5)
  - RESPIRATORY FAILURE [None]
  - PNEUMONIA ASPIRATION [None]
  - SKIN ULCER [None]
  - PNEUMOMEDIASTINUM [None]
  - INTERSTITIAL LUNG DISEASE [None]
